FAERS Safety Report 8593901 (Version 3)
Quarter: 2012Q4

REPORT INFORMATION
  Report Type: 
  Country: US (occurrence: US)
  Receive Date: 20120604
  Receipt Date: 20120927
  Transmission Date: 20130627
  Serious: No
  Sender: FDA-Public Use
  Company Number: US-BAYER-2012-054220

PATIENT
  Age: 47 Year
  Sex: Male

DRUGS (4)
  1. LEVITRA [Suspect]
     Indication: ERECTILE DYSFUNCTION
     Dosage: 5 mg, UNK
     Route: 048
  2. LISINOPRIL GENERIC [Concomitant]
  3. VERAL [Concomitant]
  4. CRESTOR [Concomitant]

REACTIONS (6)
  - Feeling abnormal [Recovered/Resolved]
  - Flushing [Recovered/Resolved]
  - Erythema [Recovered/Resolved]
  - Swelling face [Recovered/Resolved]
  - Palpitations [None]
  - Chest discomfort [None]
